FAERS Safety Report 6625701-6 (Version None)
Quarter: 2010Q1

REPORT INFORMATION
  Report Type: 
  Country: None (occurrence: None)
  Receive Date: 20100223
  Receipt Date: 20091203
  Transmission Date: 20100710
  Serious: No
  Sender: FDA-Public Use
  Company Number: 8039327

PATIENT
  Sex: Male
  Weight: 122.7 kg

DRUGS (1)
  1. CERTOLIZUMAB PEGOL [Suspect]
     Indication: CROHN'S DISEASE
     Dosage: (SUBCUTANEOUS), (200 MG, ONCE MONTHLY SUBCUTANEOUS)
     Route: 058
     Dates: start: 20080901

REACTIONS (4)
  - ARTHRALGIA [None]
  - FATIGUE [None]
  - JOINT STIFFNESS [None]
  - SOMNOLENCE [None]
